FAERS Safety Report 5592745-5 (Version None)
Quarter: 2007Q4

REPORT INFORMATION
  Report Type: 
  Country: None (occurrence: None)
  Receive Date: 20071217
  Receipt Date: 20071019
  Transmission Date: 20080405
  Serious: No
  Sender: FDA-Public Use
  Company Number: BDI-010395

PATIENT
  Age: 64 Year
  Sex: Male
  Weight: 93 kg

DRUGS (2)
  1. MULTIHANCE [Suspect]
     Indication: ANGIOGRAM PULMONARY
     Dosage: 10 ML ONCE IV
     Route: 042
     Dates: start: 20071017, end: 20071017
  2. MULTIHANCE [Suspect]
     Indication: ANGIOGRAM PULMONARY
     Dosage: 15 ML ONCE IV
     Route: 042
     Dates: start: 20071017, end: 20071017

REACTIONS (1)
  - HYPERSENSITIVITY [None]
